FAERS Safety Report 13346370 (Version 2)
Quarter: 2017Q2

REPORT INFORMATION
  Report Type: Report from Study
  Country: US (occurrence: US)
  Receive Date: 20170317
  Receipt Date: 20170602
  Transmission Date: 20170830
  Serious: Yes (Death)
  Sender: FDA-Public Use
  Company Number: US-UCBSA-2016047085

PATIENT
  Age: 70 Year
  Sex: Female

DRUGS (1)
  1. ROTIGOTINE [Suspect]
     Active Substance: ROTIGOTINE
     Indication: PARKINSON^S DISEASE
     Dosage: STRENGTH: 2 MG

REACTIONS (2)
  - Pruritus generalised [Unknown]
  - Death [Fatal]

NARRATIVE: CASE EVENT DATE: 20170310
